FAERS Safety Report 5708112-7 (Version None)
Quarter: 2008Q2

REPORT INFORMATION
  Report Type: 
  Country: None (occurrence: None)
  Receive Date: 20080417
  Receipt Date: 20080411
  Transmission Date: 20081010
  Serious: Yes (Death, Hospitalization)
  Sender: FDA-Public Use
  Company Number: A0685970A

PATIENT
  Age: 39 Year
  Sex: Female
  Weight: 46 kg

DRUGS (2)
  1. PAZOPANIB [Suspect]
     Dosage: 400MG PER DAY
     Route: 048
     Dates: start: 20070515
  2. LAPATINIB [Suspect]
     Dosage: 1000MG PER DAY
     Route: 048
     Dates: start: 20070515

REACTIONS (3)
  - FATIGUE [None]
  - ORAL INTAKE REDUCED [None]
  - RESPIRATORY FAILURE [None]
